FAERS Safety Report 10675353 (Version 2)
Quarter: 2014Q4

REPORT INFORMATION
  Report Type: Spontaneous
  Country: AU (occurrence: AU)
  Receive Date: 20141224
  Receipt Date: 20141224
  Transmission Date: 20150529
  Serious: Yes (Hospitalization, Other)
  Sender: FDA-Public Use
  Company Number: AU-PFIZER INC-2014327509

PATIENT
  Age: 51 Year
  Sex: Female

DRUGS (2)
  1. CHAMPIX [Suspect]
     Active Substance: VARENICLINE TARTRATE
     Dosage: 1 MG, 2X/DAY
     Route: 048
     Dates: start: 20140829, end: 201410
  2. CHAMPIX [Suspect]
     Active Substance: VARENICLINE TARTRATE
     Indication: SMOKING CESSATION THERAPY
     Dosage: INITIAL PACK
     Route: 048
     Dates: start: 2014, end: 2014

REACTIONS (3)
  - Mood altered [Recovered/Resolved with Sequelae]
  - Emotional disorder [Unknown]
  - Suicidal behaviour [Recovered/Resolved with Sequelae]

NARRATIVE: CASE EVENT DATE: 201410
